FAERS Safety Report 15108735 (Version 4)
Quarter: 2018Q4

REPORT INFORMATION
  Report Type: Report from Study
  Country: FR (occurrence: FR)
  Receive Date: 20180705
  Receipt Date: 20181220
  Transmission Date: 20190204
  Serious: Yes (Other)
  Sender: FDA-Public Use
  Company Number: FR-BRISTOL-MYERS SQUIBB COMPANY-BMS-2017-081431

PATIENT
  Age: 88 Year
  Sex: Male

DRUGS (13)
  1. NIVOLUMAB [Suspect]
     Active Substance: NIVOLUMAB
     Indication: PRODUCT USED FOR UNKNOWN INDICATION
     Dosage: 201 MG, Q2WK
     Route: 042
  2. INNOHEP [Concomitant]
     Active Substance: TINZAPARIN SODIUM
     Indication: PRODUCT USED FOR UNKNOWN INDICATION
     Dosage: 12000 IU, UNK
     Route: 058
  3. RAMIPRIL. [Concomitant]
     Active Substance: RAMIPRIL
     Indication: PRODUCT USED FOR UNKNOWN INDICATION
     Dosage: 5 MG, UNK
     Route: 065
  4. UROREC [Concomitant]
     Active Substance: SILODOSIN
     Indication: PRODUCT USED FOR UNKNOWN INDICATION
     Dosage: 4 MG, UNK
     Route: 065
  5. LAMALINE                           /00764901/ [Concomitant]
     Active Substance: ACETAMINOPHEN\BELLADONNA LEAF\CAFFEINE\OPIUM
     Indication: PRODUCT USED FOR UNKNOWN INDICATION
     Dosage: 1 DF, QD
     Route: 065
  6. RAMIPRIL. [Concomitant]
     Active Substance: RAMIPRIL
     Indication: PRODUCT USED FOR UNKNOWN INDICATION
     Dosage: 2.5 MG, QD
     Route: 065
  7. NIVOLUMAB [Suspect]
     Active Substance: NIVOLUMAB
     Indication: LUNG NEOPLASM MALIGNANT
     Dosage: 204 MG, Q2WK
     Route: 042
     Dates: start: 20170809
  8. KAYEXALATE [Concomitant]
     Active Substance: SODIUM POLYSTYRENE SULFONATE
     Indication: HYPERKALAEMIA
     Dosage: UNK
     Route: 065
  9. COMBODART [Concomitant]
     Active Substance: DUTASTERIDE\TAMSULOSIN
     Indication: PRODUCT USED FOR UNKNOWN INDICATION
     Dosage: UNK
     Route: 065
  10. LASILIX                            /00032601/ [Concomitant]
     Active Substance: FUROSEMIDE
     Indication: PRODUCT USED FOR UNKNOWN INDICATION
     Dosage: 10 MG, QD
     Route: 005
  11. LASILIX                            /00032601/ [Concomitant]
     Active Substance: FUROSEMIDE
     Indication: PRODUCT USED FOR UNKNOWN INDICATION
     Dosage: 20 MG, UNK
     Route: 065
  12. NIVOLUMAB [Suspect]
     Active Substance: NIVOLUMAB
     Indication: PRODUCT USED FOR UNKNOWN INDICATION
     Dosage: 198 MG, Q2WK
     Route: 042
  13. BISOPROLOL [Concomitant]
     Active Substance: BISOPROLOL
     Indication: PRODUCT USED FOR UNKNOWN INDICATION
     Dosage: 1.25 MG, BID
     Route: 065

REACTIONS (20)
  - Hypotension [Recovered/Resolved]
  - Vision blurred [Recovered/Resolved]
  - Musculoskeletal chest pain [Recovered/Resolved]
  - Dry skin [Recovered/Resolved]
  - Skin lesion [Recovered/Resolved]
  - Arthralgia [Recovered/Resolved]
  - Osteoarthritis [Unknown]
  - Thrombocytopenia [Recovering/Resolving]
  - Ageusia [Recovered/Resolved]
  - Eczema [Recovering/Resolving]
  - Deafness [Recovered/Resolved]
  - Injury [Recovered/Resolved]
  - Dyspnoea [Recovered/Resolved]
  - Constipation [Recovered/Resolved]
  - Musculoskeletal chest pain [Recovered/Resolved]
  - Rhinorrhoea [Recovered/Resolved]
  - Dysphagia [Recovered/Resolved]
  - Micturition disorder [Recovered/Resolved]
  - Hyperkalaemia [Recovered/Resolved]
  - Dizziness [Recovered/Resolved]

NARRATIVE: CASE EVENT DATE: 20170809
